FAERS Safety Report 8997409 (Version 1)
Quarter: 2013Q1

REPORT INFORMATION
  Report Type: Spontaneous
  Country: US (occurrence: US)
  Receive Date: 20130104
  Receipt Date: 20130104
  Transmission Date: 20140127
  Serious: No
  Sender: FDA-Public Use
  Company Number: US-PFIZER INC-2013002491

PATIENT
  Age: 36 Year
  Sex: Female
  Weight: 71.2 kg

DRUGS (4)
  1. PRISTIQ [Suspect]
     Indication: ANXIETY
     Dosage: 50 MG, 2X/DAY
     Dates: start: 2012, end: 2012
  2. PRISTIQ [Suspect]
     Indication: DEPRESSION
     Dosage: 100 MG, 2X/DAY
     Dates: start: 2012, end: 2012
  3. PRISTIQ [Suspect]
     Dosage: 50 MG, 2X/DAY
     Dates: start: 2012
  4. SYNTHROID [Concomitant]
     Indication: HYPERTHYROIDISM
     Dosage: 125 MCG, DAILY

REACTIONS (2)
  - Drug ineffective [Not Recovered/Not Resolved]
  - Fatigue [Recovered/Resolved]
